FAERS Safety Report 6716382-1 (Version None)
Quarter: 2010Q2

REPORT INFORMATION
  Report Type: 
  Country: None (occurrence: None)
  Receive Date: 20100507
  Receipt Date: 20100427
  Transmission Date: 20101027
  Serious: Yes (Disabling)
  Sender: FDA-Public Use
  Company Number: US-WYE-H14853710

PATIENT
  Sex: Female
  Weight: 68.1 kg

DRUGS (4)
  1. PRISTIQ [Suspect]
     Indication: DEPRESSION
     Route: 048
     Dates: start: 20100415
  2. VALIUM [Concomitant]
     Indication: TREMOR
     Dosage: UNKNOWN
  3. LEXAPRO [Interacting]
     Indication: DEPRESSION
     Route: 048
     Dates: start: 20070101, end: 20100401
  4. LEXAPRO [Interacting]
     Route: 048
     Dates: start: 20100401

REACTIONS (5)
  - DRUG INTERACTION [None]
  - ENERGY INCREASED [None]
  - HEADACHE [None]
  - IRRITABILITY [None]
  - NERVOUSNESS [None]
